FAERS Safety Report 16689539 (Version 1)
Quarter: 2019Q3

REPORT INFORMATION
  Report Type: Spontaneous
  Country: US (occurrence: US)
  Receive Date: 20190809
  Receipt Date: 20190809
  Transmission Date: 20191004
  Serious: No
  Sender: FDA-Public Use
  Company Number: US-SA-2019SA215161

PATIENT
  Age: 47 Year
  Sex: Female

DRUGS (1)
  1. PRALUENT [Suspect]
     Active Substance: ALIROCUMAB
     Indication: MUCOPOLYSACCHARIDOSIS
     Dosage: 75 MG, QOW
     Route: 058
     Dates: start: 20180726

REACTIONS (2)
  - Product use in unapproved indication [Unknown]
  - Dyskinesia [Unknown]

NARRATIVE: CASE EVENT DATE: 20180726
